FAERS Safety Report 7305934-6 (Version None)
Quarter: 2011Q1

REPORT INFORMATION
  Report Type: 
  Country: None (occurrence: None)
  Receive Date: 20110222
  Receipt Date: 20110214
  Transmission Date: 20110831
  Serious: Yes (Other)
  Sender: FDA-Public Use
  Company Number: BR-US-EMD SERONO, INC.-7042258

PATIENT
  Sex: Female

DRUGS (4)
  1. MANTIDAN [Concomitant]
  2. REBIF [Suspect]
     Indication: RELAPSING-REMITTING MULTIPLE SCLEROSIS
     Dates: start: 20020902
  3. SIFROL [Concomitant]
  4. RETEMIC [Concomitant]

REACTIONS (10)
  - TREMOR [None]
  - URINARY INCONTINENCE [None]
  - PAIN [None]
  - MOTOR DYSFUNCTION [None]
  - HYPOAESTHESIA [None]
  - PARKINSON'S DISEASE [None]
  - CONSTIPATION [None]
  - SPEECH DISORDER [None]
  - ABASIA [None]
  - ARTHRALGIA [None]
